FAERS Safety Report 19678425 (Version 1)
Quarter: 2021Q3

REPORT INFORMATION
  Report Type: Spontaneous
  Country: JP (occurrence: JP)
  Receive Date: 20210810
  Receipt Date: 20210810
  Transmission Date: 20211014
  Serious: Yes (Hospitalization)
  Sender: FDA-Public Use
  Company Number: JP-NOVOPROD-835368

PATIENT
  Age: 23 Year
  Sex: Female
  Weight: 42.1 kg

DRUGS (2)
  1. TRESIBA [Suspect]
     Active Substance: INSULIN DEGLUDEC
     Indication: PANCREATOGENOUS DIABETES
     Dosage: UNK
     Route: 058
  2. NOVORAPID [Suspect]
     Active Substance: INSULIN ASPART
     Indication: PANCREATOGENOUS DIABETES
     Dosage: UNK
     Route: 058

REACTIONS (1)
  - Diabetic ketoacidosis [Recovered/Resolved]
